FAERS Safety Report 9061243 (Version 1)
Quarter: 2013Q1

REPORT INFORMATION
  Report Type: Spontaneous
  Country: US (occurrence: None)
  Receive Date: 20130208
  Receipt Date: 20130208
  Transmission Date: 20140127
  Serious: No
  Sender: FDA-Public Use
  Company Number: None

PATIENT
  Age: 29 Year
  Sex: Male
  Weight: 79.38 kg

DRUGS (1)
  1. CLARITIN D [Suspect]
     Indication: DYSPNOEA
     Dosage: 1 PILL 1 PER 24 HOURS
     Dates: start: 20130204, end: 20130206

REACTIONS (2)
  - Hallucination [None]
  - Feeling abnormal [None]
